FAERS Safety Report 9228402 (Version 5)
Quarter: 2013Q4

REPORT INFORMATION
  Report Type: Spontaneous
  Country: US (occurrence: US)
  Receive Date: 20130412
  Receipt Date: 20131125
  Transmission Date: 20140711
  Serious: Yes (Life-Threatening, Hospitalization, Disabling, Other)
  Sender: FDA-Public Use
  Company Number: US-GLAXOSMITHKLINE-A1019070A

PATIENT
  Age: 49 Year
  Sex: Male

DRUGS (6)
  1. VOTRIENT [Suspect]
     Indication: PRODUCT USED FOR UNKNOWN INDICATION
     Dosage: 800MG PER DAY
     Route: 048
     Dates: start: 20130216, end: 20130705
  2. MULTI-VITAMIN [Concomitant]
  3. FISH OIL [Concomitant]
  4. VITAMIN C [Concomitant]
  5. VITAMIN E [Concomitant]
  6. LOMOTIL [Concomitant]

REACTIONS (4)
  - Pneumothorax [Recovering/Resolving]
  - Influenza [Recovering/Resolving]
  - White blood cell count decreased [Recovering/Resolving]
  - Drug ineffective [Unknown]
